FAERS Safety Report 8124123-9 (Version None)
Quarter: 2012Q1

REPORT INFORMATION
  Report Type: 
  Country: None (occurrence: None)
  Receive Date: 20120209
  Receipt Date: 20120130
  Transmission Date: 20120608
  Serious: Yes (Other)
  Sender: FDA-Public Use
  Company Number: US-JNJFOC-20120201121

PATIENT
  Age: 31 Year
  Sex: Female
  Weight: 77.11 kg

DRUGS (4)
  1. ZANTAC [Concomitant]
     Indication: GASTROOESOPHAGEAL REFLUX DISEASE
     Route: 065
     Dates: start: 20110701
  2. PRECISE EXTRA STRENGTH PAIN RELIEVING CREAM [Suspect]
     Indication: SPINAL DISORDER
     Route: 061
     Dates: start: 20111001
  3. ORTHO TRI-CYCLEN [Concomitant]
     Indication: ORAL CONTRACEPTION
     Dosage: ^VARIES^
     Route: 065
     Dates: start: 20040101
  4. ZYRTEC [Concomitant]
     Indication: URTICARIA
     Route: 065
     Dates: start: 20080101

REACTIONS (2)
  - URTICARIA [None]
  - APPLICATION SITE URTICARIA [None]
